FAERS Safety Report 19248358 (Version 3)
Quarter: 2021Q4

REPORT INFORMATION
  Report Type: Spontaneous
  Country: US (occurrence: US)
  Receive Date: 20210512
  Receipt Date: 20211230
  Transmission Date: 20220303
  Serious: No
  Sender: FDA-Public Use
  Company Number: US-PFIZER INC-2021479786

PATIENT
  Age: 20 Year
  Sex: Female

DRUGS (2)
  1. XELJANZ XR [Suspect]
     Active Substance: TOFACITINIB CITRATE
     Indication: Rheumatoid arthritis
     Dosage: 11 MG, DAILY
     Route: 048
     Dates: start: 202103
  2. XELJANZ XR [Suspect]
     Active Substance: TOFACITINIB CITRATE
     Dosage: 11 MG, DAILY
     Route: 048
     Dates: start: 20210306

REACTIONS (7)
  - Gait disturbance [Unknown]
  - Pain [Unknown]
  - Self-consciousness [Unknown]
  - Swelling [Recovering/Resolving]
  - Musculoskeletal stiffness [Recovering/Resolving]
  - Discouragement [Unknown]
  - Depression [Unknown]
